FAERS Safety Report 13139164 (Version 4)
Quarter: 2017Q1

REPORT INFORMATION
  Report Type: Report from Study
  Country: None (occurrence: GB)
  Receive Date: 20170123
  Receipt Date: 20170223
  Transmission Date: 20170428
  Serious: Yes (Hospitalization, Other)
  Sender: FDA-Public Use
  Company Number: GB-ABBVIE-17K-167-1839630-00

PATIENT
  Age: 50 Year
  Sex: Female
  Weight: 93 kg

DRUGS (5)
  1. HUMIRA [Suspect]
     Active Substance: ADALIMUMAB
     Indication: PSORIASIS
     Route: 058
     Dates: start: 20120509, end: 20121219
  2. HUMIRA [Suspect]
     Active Substance: ADALIMUMAB
     Route: 058
  3. MIRTAZAPINE. [Concomitant]
     Active Substance: MIRTAZAPINE
     Indication: PRODUCT USED FOR UNKNOWN INDICATION
     Dates: start: 20100304
  4. HUMIRA [Suspect]
     Active Substance: ADALIMUMAB
     Route: 058
     Dates: start: 20130731, end: 20140115
  5. HUMIRA [Suspect]
     Active Substance: ADALIMUMAB
     Route: 058
     Dates: start: 20141015, end: 20151021

REACTIONS (8)
  - Gastritis [Unknown]
  - Hiatus hernia [Unknown]
  - Abnormal behaviour [Unknown]
  - Duodenitis [Unknown]
  - Iron deficiency anaemia [Unknown]
  - Gastric mucosal lesion [Unknown]
  - Oesophagitis [Unknown]
  - Mental disorder [Unknown]

NARRATIVE: CASE EVENT DATE: 20130829
